FAERS Safety Report 4652566-4 (Version None)
Quarter: 2005Q2

REPORT INFORMATION
  Report Type: 
  Country: None (occurrence: None)
  Receive Date: 20050502
  Receipt Date: 20050201
  Transmission Date: 20051028
  Serious: Yes (Life-Threatening, Hospitalization)
  Sender: FDA-Public Use
  Company Number: 800270

PATIENT
  Age: 54 Year
  Sex: Male
  Weight: 59 kg

DRUGS (17)
  1. EXTRANEAL (EXTRANEAL (ICODEXTRIN 7.5%) SOLUTION OF PD) [Suspect]
     Indication: RENAL FAILURE CHRONIC
     Dosage: 1500 ML; QD; INTRAPERITONEAL
     Route: 033
     Dates: start: 20031219
  2. DIANEAL [Concomitant]
  3. ALFAROL [Concomitant]
  4. FUROSEMIDE [Concomitant]
  5. VALSARTAN [Concomitant]
  6. GASTER [Concomitant]
  7. NORVASC [Concomitant]
  8. CALCIUM CARBONATE [Concomitant]
  9. HALCION [Concomitant]
  10. LEBENIN [Concomitant]
  11. EPOGIN [Concomitant]
  12. ARTIST [Concomitant]
  13. RENIVACE [Concomitant]
  14. LENDORM [Concomitant]
  15. PROTECADIN [Concomitant]
  16. BAYASPIRIN [Concomitant]
  17. RESTAMIN [Concomitant]

REACTIONS (9)
  - ACUTE MYOCARDIAL INFARCTION [None]
  - ASTHMA [None]
  - BLOOD PRESSURE DECREASED [None]
  - BRONCHITIS ACUTE [None]
  - COUGH [None]
  - DIAPHRAGMATIC RUPTURE [None]
  - DYSPNOEA [None]
  - ELECTROCARDIOGRAM ST SEGMENT ELEVATION [None]
  - PAIN IN EXTREMITY [None]
